FAERS Safety Report 6657081-4 (Version None)
Quarter: 2010Q1

REPORT INFORMATION
  Report Type: 
  Country: None (occurrence: None)
  Receive Date: 20100330
  Receipt Date: 20100320
  Transmission Date: 20100710
  Serious: Yes (Hospitalization)
  Sender: FDA-Public Use
  Company Number: US-RANBAXY-2010US-32631

PATIENT

DRUGS (1)
  1. ISOPTIN SR [Suspect]
     Indication: DRUG USE FOR UNKNOWN INDICATION
     Dosage: 180 MG, 30 TABLETS
     Route: 048

REACTIONS (2)
  - LACTIC ACIDOSIS [None]
  - OVERDOSE [None]
